FAERS Safety Report 23925802 (Version 1)
Quarter: 2024Q2

REPORT INFORMATION
  Report Type: Spontaneous
  Country: ES (occurrence: ES)
  Receive Date: 20240531
  Receipt Date: 20240531
  Transmission Date: 20240715
  Serious: Yes (Death, Other)
  Sender: FDA-Public Use
  Company Number: ES-TEVA-VS-3196607

PATIENT
  Age: 46 Year
  Sex: Female

DRUGS (2)
  1. PACLITAXEL [Suspect]
     Active Substance: PACLITAXEL
     Indication: Angiosarcoma
     Dosage: WEEKLY
     Dates: start: 2021, end: 2021
  2. PAZOPANIB [Concomitant]
     Active Substance: PAZOPANIB
     Dosage: UNK

REACTIONS (7)
  - Gastrointestinal haemorrhage [Fatal]
  - Shock haemorrhagic [Fatal]
  - Thrombocytopenia [Fatal]
  - Anaemia [Fatal]
  - Leukoerythroblastosis [Fatal]
  - Haemorrhagic disorder [Fatal]
  - Off label use [Unknown]

NARRATIVE: CASE EVENT DATE: 20210101
